FAERS Safety Report 6173848-3 (Version None)
Quarter: 2009Q2

REPORT INFORMATION
  Report Type: 
  Country: None (occurrence: None)
  Receive Date: 20090429
  Receipt Date: 20090429
  Transmission Date: 20091009
  Serious: Yes (Life-Threatening, Other)
  Sender: FDA-Public Use
  Company Number: None

PATIENT
  Sex: Female
  Weight: 136.0791 kg

DRUGS (1)
  1. LIPITOR [Suspect]
     Indication: BLOOD CHOLESTEROL INCREASED
     Dates: start: 20081215, end: 20090425

REACTIONS (13)
  - ABASIA [None]
  - CONSTIPATION [None]
  - CRYING [None]
  - DYSSTASIA [None]
  - ERYTHEMA [None]
  - INSOMNIA [None]
  - MYALGIA [None]
  - NO THERAPEUTIC RESPONSE [None]
  - OEDEMA PERIPHERAL [None]
  - RENAL PAIN [None]
  - SCREAMING [None]
  - SKIN WARM [None]
  - URINE OUTPUT DECREASED [None]
